FAERS Safety Report 6418137-4 (Version None)
Quarter: 2009Q4

REPORT INFORMATION
  Report Type: 
  Country: None (occurrence: None)
  Receive Date: 20091028
  Receipt Date: 20091019
  Transmission Date: 20100525
  Serious: Yes (Other)
  Sender: FDA-Public Use
  Company Number: CA-BAYER-200915683BCC

PATIENT
  Age: 7 Year
  Sex: Male
  Weight: 26 kg

DRUGS (42)
  1. CLOTRIMAZOLE [Suspect]
     Indication: DRUG USE FOR UNKNOWN INDICATION
     Route: 061
  2. DOXORUBICIN HCL [Suspect]
     Indication: DRUG USE FOR UNKNOWN INDICATION
     Route: 065
  3. ACETAMINOPHEN [Concomitant]
     Route: 048
  4. ACYCLOVIR [Concomitant]
     Route: 042
  5. ALLOPURINOL [Concomitant]
     Route: 048
  6. ACTIVASE [Concomitant]
     Route: 042
  7. CALCIUM [Concomitant]
     Route: 048
  8. CHOLECALCIFEROL [Concomitant]
     Route: 048
  9. CODEINE [Concomitant]
     Route: 048
  10. CYTARABINE [Concomitant]
     Route: 037
  11. DIMENHYDRINATE [Concomitant]
     Route: 042
  12. DIMENHYDRINATE [Concomitant]
     Route: 048
  13. DIPHENHYDRAMINE [Concomitant]
     Route: 048
  14. DOCUSATE SODIUM [Concomitant]
     Route: 048
  15. FAMCICLOVIR [Concomitant]
     Route: 048
  16. FLUTICASONE [Concomitant]
     Route: 045
  17. FOLIC ACID [Concomitant]
     Route: 042
  18. HYDROCORTISONE [Concomitant]
     Route: 037
  19. ELSPAR [Concomitant]
     Route: 030
  20. MERCAPTOPURINE [Concomitant]
     Route: 048
  21. METHOTREXATE [Concomitant]
     Route: 030
  22. METHOTREXATE [Concomitant]
     Route: 037
  23. METHOTREXATE [Concomitant]
     Route: 042
  24. METHYLPREDNISOLONE SODIUM SUCCINATE [Concomitant]
     Route: 042
  25. MINERAL OIL [Concomitant]
     Route: 048
  26. MORPHINE [Concomitant]
     Route: 042
  27. MORPHINE [Concomitant]
     Route: 048
  28. NIFEDIPINE [Concomitant]
     Route: 048
  29. NYSTATIN [Concomitant]
     Route: 048
  30. ONDANSETRON [Concomitant]
     Route: 042
  31. ONDANSETRON [Concomitant]
     Route: 048
  32. PAMIDRONATE DISODIUM [Concomitant]
     Route: 042
  33. PHYTONADIONE [Concomitant]
     Route: 048
  34. PREDNISONE TAB [Concomitant]
     Route: 048
  35. RANITIDINE [Concomitant]
     Route: 042
  36. RANITIDINE [Concomitant]
     Route: 048
  37. ALBUTEROL [Concomitant]
     Route: 045
  38. SULFAMETHOXAZOLE AND TRIMETHOPRIM [Concomitant]
     Route: 048
  39. TIMENTIN [Concomitant]
     Route: 042
  40. TOBRAMYCIN [Concomitant]
     Route: 042
  41. VANCOMYCIN [Concomitant]
     Route: 042
  42. VINCRISTINE SULFATE [Concomitant]
     Route: 042

REACTIONS (2)
  - ELECTROCARDIOGRAM ABNORMAL [None]
  - VENTRICULAR DYSFUNCTION [None]
